FAERS Safety Report 10757260 (Version 1)
Quarter: 2015Q1

REPORT INFORMATION
  Report Type: Spontaneous
  Country: FR (occurrence: FR)
  Receive Date: 20150203
  Receipt Date: 20150203
  Transmission Date: 20150721
  Serious: Yes (Hospitalization)
  Sender: FDA-Public Use
  Company Number: FR-BAYER-2015-012157

PATIENT
  Age: 31 Year
  Sex: Female

DRUGS (10)
  1. GLUCOR [Suspect]
     Active Substance: ACARBOSE
     Indication: ILL-DEFINED DISORDER
     Dosage: 200 MG, QD
     Route: 048
     Dates: end: 19980420
  2. FONZYLANE [Suspect]
     Active Substance: BUFLOMEDIL
     Indication: ILL-DEFINED DISORDER
     Dosage: 450 MG, TID
     Route: 048
     Dates: end: 19980422
  3. LASILIX [Concomitant]
     Active Substance: FUROSEMIDE
  4. KARDEGIC [Concomitant]
     Active Substance: ASPIRIN LYSINE
  5. GAVISCON [Suspect]
     Active Substance: ALUMINUM HYDROXIDE\MAGNESIUM CARBONATE
     Indication: ILL-DEFINED DISORDER
     Route: 048
  6. NOCTRAN 10 [Suspect]
     Active Substance: ACEPROMAZINE\ACEPROMETAZINE\CLORAZEPATE DIPOTASSIUM
     Indication: ILL-DEFINED DISORDER
     Dosage: UNK UNK, QD
     Route: 048
     Dates: start: 19980420
  7. CELESTAMINE [Suspect]
     Active Substance: BETAMETHASONE\DEXCHLORPHENIRAMINE MALEATE
     Indication: ILL-DEFINED DISORDER
     Dosage: UNK
     Route: 048
     Dates: end: 19980420
  8. GARDENAL [Concomitant]
     Active Substance: PHENOBARBITAL
  9. UMULINE [Concomitant]
     Active Substance: INSULIN HUMAN
  10. DI-ANTALVIC [Concomitant]
     Active Substance: ACETAMINOPHEN\PROPOXYPHENE HYDROCHLORIDE

REACTIONS (2)
  - Psoriasis [Recovered/Resolved]
  - Dermatitis bullous [Recovered/Resolved]

NARRATIVE: CASE EVENT DATE: 19980420
